FAERS Safety Report 7689172-3 (Version None)
Quarter: 2011Q3

REPORT INFORMATION
  Report Type: 
  Country: None (occurrence: None)
  Receive Date: 20110811
  Receipt Date: 20110803
  Transmission Date: 20111222
  Serious: Yes (Hospitalization, Other)
  Sender: FDA-Public Use
  Company Number: 1000022658

PATIENT
  Age: 80 Year
  Sex: Male

DRUGS (9)
  1. NAMENDA [Suspect]
     Indication: DEMENTIA
     Dosage: SEE IMAGE
     Route: 048
     Dates: start: 20110701, end: 20110803
  2. NAMENDA [Suspect]
     Indication: DEMENTIA
     Dosage: SEE IMAGE
     Route: 048
     Dates: start: 20110601, end: 20110601
  3. NAMENDA [Suspect]
     Indication: DEMENTIA
     Dosage: SEE IMAGE
     Route: 048
     Dates: start: 20110601, end: 20110601
  4. NAMENDA [Suspect]
     Indication: DEMENTIA
     Dosage: SEE IMAGE
     Route: 048
     Dates: start: 20110601, end: 20110701
  5. EXELON (RIVASTIGMINE) (RIVASTIGMINE) [Concomitant]
  6. LANOXIN (DIGOXIN) (DIGOXIN) [Concomitant]
  7. LASIX [Concomitant]
  8. POTASSIUM (POTASSIUM) (POTASSIUM) [Concomitant]
  9. COUMADIN [Suspect]

REACTIONS (5)
  - DEMENTIA [None]
  - FALL [None]
  - DRUG INTERACTION [None]
  - CONDITION AGGRAVATED [None]
  - HAEMORRHAGIC STROKE [None]
